FAERS Safety Report 6012013-7 (Version None)
Quarter: 2008Q4

REPORT INFORMATION
  Report Type: 
  Country: None (occurrence: None)
  Receive Date: 20081218
  Receipt Date: 20081027
  Transmission Date: 20090506
  Serious: No
  Sender: FDA-Public Use
  Company Number: US-ASTRAZENECA-2008UW23921

PATIENT
  Age: 73 Year
  Sex: Female
  Weight: 44.5 kg

DRUGS (3)
  1. CRESTOR [Suspect]
     Indication: BLOOD CHOLESTEROL INCREASED
     Route: 048
     Dates: start: 20080501
  2. RAMICITL [Concomitant]
     Dosage: EVERY DAY
  3. FOSAMAX [Concomitant]
     Dosage: WEEKLY

REACTIONS (2)
  - ALOPECIA [None]
  - MUSCLE SPASMS [None]
